FAERS Safety Report 4592312-6 (Version None)
Quarter: 2005Q1

REPORT INFORMATION
  Report Type: 
  Country: None (occurrence: None)
  Receive Date: 20050228
  Receipt Date: 20041201
  Transmission Date: 20050727
  Serious: No
  Sender: FDA-Public Use
  Company Number: US-BRISTOL-MYERS SQUIBB COMPANY-12781407

PATIENT
  Sex: Female
  Weight: 66 kg

DRUGS (8)
  1. ABILIFY [Suspect]
     Indication: SCHIZOPHRENIA
     Route: 048
  2. XANAX [Concomitant]
  3. PAXIL [Concomitant]
  4. AMBIEN [Concomitant]
  5. PREVACID [Concomitant]
  6. SONATA [Concomitant]
  7. ALLEGRA-D [Concomitant]
  8. BENADRYL [Concomitant]

REACTIONS (6)
  - ANXIETY [None]
  - HALLUCINATION [None]
  - INSOMNIA [None]
  - MOOD SWINGS [None]
  - PANIC ATTACK [None]
  - RESTLESSNESS [None]
